FAERS Safety Report 11529688 (Version 1)
Quarter: 2015Q3

REPORT INFORMATION
  Report Type: Other
  Country: IT (occurrence: IT)
  Receive Date: 20150921
  Receipt Date: 20150921
  Transmission Date: 20151125
  Serious: Yes (Hospitalization)
  Sender: FDA-Public Use
  Company Number: IT-MYLANLABS-2015M1030736

PATIENT

DRUGS (5)
  1. SERTRALINA MYLAN GENERICS 100MG [Suspect]
     Active Substance: SERTRALINE HYDROCHLORIDE
     Indication: PRODUCT USED FOR UNKNOWN INDICATION
     Dosage: 4 G, TOTAL
     Route: 048
     Dates: start: 20150904, end: 20150904
  2. COTAREG [Suspect]
     Active Substance: HYDROCHLOROTHIAZIDE\VALSARTAN
     Indication: PRODUCT USED FOR UNKNOWN INDICATION
     Dosage: 30 DF, TOTAL
     Route: 048
     Dates: start: 20150904, end: 20150904
  3. METFORMINA MYLAN 500 MG COMPRESSE RIVESTITE CON FILM [Suspect]
     Active Substance: METFORMIN HYDROCHLORIDE
     Indication: PRODUCT USED FOR UNKNOWN INDICATION
     Dosage: 19 G, TOTAL
     Route: 048
     Dates: start: 20150904, end: 20150904
  4. SERTRALINE [Concomitant]
     Active Substance: SERTRALINE HYDROCHLORIDE
     Indication: DEPRESSION
     Dosage: 50 MG, UNK
     Route: 048
     Dates: start: 20140101
  5. XANAX [Concomitant]
     Active Substance: ALPRAZOLAM
     Indication: ANXIETY
     Dosage: 1 MG, UNK
     Route: 048
     Dates: start: 20140101

REACTIONS (5)
  - Sedation [Recovered/Resolved]
  - Sopor [Recovered/Resolved]
  - Drug abuse [Unknown]
  - Vomiting [Recovered/Resolved]
  - Intentional overdose [Unknown]

NARRATIVE: CASE EVENT DATE: 20150904
